FAERS Safety Report 20146083 (Version 2)
Quarter: 2022Q1

REPORT INFORMATION
  Report Type: Report from Study
  Country: US (occurrence: US)
  Receive Date: 20211203
  Receipt Date: 20220208
  Transmission Date: 20220424
  Serious: Yes (Hospitalization)
  Sender: FDA-Public Use
  Company Number: US-TAKEDA-2021TUS073560

PATIENT
  Age: 3 Year
  Sex: Male

DRUGS (11)
  1. TEDUGLUTIDE [Suspect]
     Active Substance: TEDUGLUTIDE
     Indication: Short-bowel syndrome
     Dosage: 0.67 MILLIGRAM, QD
     Route: 065
     Dates: start: 20200116
  2. TEDUGLUTIDE [Suspect]
     Active Substance: TEDUGLUTIDE
     Indication: Short-bowel syndrome
     Dosage: 0.67 MILLIGRAM, QD
     Route: 065
     Dates: start: 20200116
  3. TEDUGLUTIDE [Suspect]
     Active Substance: TEDUGLUTIDE
     Indication: Short-bowel syndrome
     Dosage: 0.67 MILLIGRAM, QD
     Route: 065
     Dates: start: 20200116
  4. TEDUGLUTIDE [Suspect]
     Active Substance: TEDUGLUTIDE
     Indication: Short-bowel syndrome
     Dosage: 0.67 MILLIGRAM, QD
     Route: 065
     Dates: start: 20200116
  5. ERYPED [Concomitant]
     Active Substance: ERYTHROMYCIN ETHYLSUCCINATE
     Indication: Spermatozoa progressive motility abnormal
     Dosage: 128 MILLIGRAM, TID
     Route: 048
     Dates: start: 20210326
  6. SYMBICORT [Concomitant]
     Active Substance: BUDESONIDE\FORMOTEROL FUMARATE DIHYDRATE
     Indication: Product used for unknown indication
     Dosage: 1 DOSAGE FORM, QD
     Route: 050
     Dates: start: 20181005
  7. RESINOL [Concomitant]
     Active Substance: PETROLATUM\RESORCINOL
     Indication: Rash
     Dosage: UNK
     Route: 061
     Dates: start: 20180608
  8. LOPERAMIDE [Concomitant]
     Active Substance: LOPERAMIDE
     Indication: Faeces hard
     Dosage: 1 MILLIGRAM, TID
     Route: 048
     Dates: start: 20180418
  9. FERROUS SULFATE [Concomitant]
     Active Substance: FERROUS SULFATE
     Indication: Iron deficiency
     Dosage: 45 MILLIGRAM, QD
     Route: 050
     Dates: start: 20210730
  10. CHOLECALCIFEROL [Concomitant]
     Active Substance: CHOLECALCIFEROL
     Indication: Vitamin supplementation
     Dosage: 25 MICROGRAM, TID
     Route: 050
     Dates: start: 20211112
  11. CHOLECALCIFEROL [Concomitant]
     Active Substance: CHOLECALCIFEROL
     Dosage: 25 MICROGRAM, QD
     Route: 050
     Dates: start: 20211112

REACTIONS (1)
  - Pyrexia [Recovered/Resolved]

NARRATIVE: CASE EVENT DATE: 20201001
